FAERS Safety Report 5953060-0 (Version None)
Quarter: 2008Q4

REPORT INFORMATION
  Report Type: 
  Country: None (occurrence: None)
  Receive Date: 20081114
  Receipt Date: 20081013
  Transmission Date: 20090506
  Serious: No
  Sender: FDA-Public Use
  Company Number: US-BRISTOL-MYERS SQUIBB COMPANY-14368385

PATIENT
  Age: 45 Year
  Sex: Female
  Weight: 72 kg

DRUGS (4)
  1. IXEMPRA KIT [Suspect]
     Route: 042
     Dates: start: 20081010, end: 20081010
  2. VICODIN [Concomitant]
  3. COMPAZINE [Concomitant]
  4. ZOFRAN [Concomitant]
     Indication: PREMEDICATION

REACTIONS (3)
  - ERYTHEMA [None]
  - OEDEMA PERIPHERAL [None]
  - PAIN IN EXTREMITY [None]
